FAERS Safety Report 9807675 (Version 1)
Quarter: 2014Q1

REPORT INFORMATION
  Report Type: Spontaneous
  Country: US (occurrence: US)
  Receive Date: 20140110
  Receipt Date: 20140110
  Transmission Date: 20141002
  Serious: Yes (Death, Other)
  Sender: FDA-Public Use
  Company Number: US-UCBSA-108191

PATIENT
  Age: 24 Year
  Sex: Male

DRUGS (3)
  1. METHYLPHENIDATE [Suspect]
     Route: 048
  2. BUPROPION (EXTENDED RELEASE) [Suspect]
     Route: 048
  3. POLYETHYLENE GLYCOL [Suspect]
     Route: 048

REACTIONS (6)
  - Completed suicide [Fatal]
  - Grand mal convulsion [Unknown]
  - Cardiac arrest [Unknown]
  - Agitation [Unknown]
  - Confusional state [Unknown]
  - Aspiration [Unknown]
